FAERS Safety Report 24254568 (Version 1)
Quarter: 2024Q3

REPORT INFORMATION
  Report Type: Spontaneous
  Country: JP (occurrence: JP)
  Receive Date: 20240827
  Receipt Date: 20240827
  Transmission Date: 20241016
  Serious: Yes (Hospitalization)
  Sender: ROCHE
  Company Number: JP-ROCHE-10000061438

PATIENT
  Age: 67 Year
  Sex: Male

DRUGS (1)
  1. EMICIZUMAB [Suspect]
     Active Substance: EMICIZUMAB
     Indication: Factor VIII deficiency
     Route: 058

REACTIONS (2)
  - Small intestinal haemorrhage [Unknown]
  - Shock haemorrhagic [Unknown]
